FAERS Safety Report 10713899 (Version 1)
Quarter: 2015Q1

REPORT INFORMATION
  Report Type: Spontaneous
  Country: BE (occurrence: BE)
  Receive Date: 20150115
  Receipt Date: 20150115
  Transmission Date: 20150721
  Serious: Yes (Hospitalization, Other)
  Sender: FDA-Public Use
  Company Number: BE-ABBVIE-14P-013-1295153-00

PATIENT
  Sex: Male

DRUGS (10)
  1. MOXONIDINE [Concomitant]
     Active Substance: MOXONIDINE
     Indication: PRODUCT USED FOR UNKNOWN INDICATION
     Dosage: 8 AM
  2. CITALOPRAM [Concomitant]
     Active Substance: CITALOPRAM HYDROBROMIDE
     Indication: PRODUCT USED FOR UNKNOWN INDICATION
     Dosage: 8 AM
  3. DUODOPA [Suspect]
     Active Substance: CARBIDOPA\LEVODOPA
     Dosage: AM DOSE=5ML, CD=2.5ML/H FOR 16HRS AND ED=2ML
     Route: 050
     Dates: start: 20141106
  4. TRAZODONE [Concomitant]
     Active Substance: TRAZODONE HYDROCHLORIDE
     Indication: PRODUCT USED FOR UNKNOWN INDICATION
     Dosage: 10 PM
  5. DUODOPA [Suspect]
     Active Substance: CARBIDOPA\LEVODOPA
     Indication: PARKINSON^S DISEASE
     Dosage: AM: 10 ML, CD:4.7 ML/H DURING 16H, ED:2.5 ML
     Route: 050
     Dates: start: 20130729, end: 20130801
  6. DUODOPA [Suspect]
     Active Substance: CARBIDOPA\LEVODOPA
     Dosage: AM: 10 ML, CD:3.6 ML/H DURING 16H, ED: 2 ML
     Route: 050
     Dates: start: 20141006, end: 20141017
  7. DUODOPA [Suspect]
     Active Substance: CARBIDOPA\LEVODOPA
     Dosage: DOSE CONTINUOUSLY MONITORED AND ADAPTED
     Route: 050
     Dates: start: 20130801, end: 20141006
  8. DUODOPA [Suspect]
     Active Substance: CARBIDOPA\LEVODOPA
     Dosage: AM: 5 ML, CD:3.4 ML/H DURING 16H, ED:2 ML
     Route: 050
     Dates: start: 20141017, end: 20141106
  9. PROLOPA HBS [Concomitant]
     Indication: PRODUCT USED FOR UNKNOWN INDICATION
     Dosage: 100 MG + 25 MG, AT BED TIME
  10. ALPRAZOLAM. [Concomitant]
     Active Substance: ALPRAZOLAM
     Indication: PRODUCT USED FOR UNKNOWN INDICATION
     Dosage: 8 AM, NOON, 5 AND 10 PM

REACTIONS (3)
  - Hospitalisation [Unknown]
  - Respiratory disorder [Unknown]
  - Epilepsy [Not Recovered/Not Resolved]
